FAERS Safety Report 21969026 (Version 1)
Quarter: 2023Q1

REPORT INFORMATION
  Report Type: Spontaneous
  Country: US (occurrence: None)
  Receive Date: 20230207
  Receipt Date: 20230207
  Transmission Date: 20230417
  Serious: No
  Sender: FDA-Public Use
  Company Number: None

PATIENT
  Age: 54 Year
  Sex: Female

DRUGS (1)
  1. GLATIRAMER ACETATE [Suspect]
     Active Substance: GLATIRAMER ACETATE
     Indication: Multiple sclerosis
     Dosage: FREQUENCY : 3 TIMES A WEEK;?
     Route: 058
     Dates: start: 202209

REACTIONS (9)
  - Dyspnoea [None]
  - Chest pain [None]
  - Hyperhidrosis [None]
  - Burning sensation [None]
  - Flushing [None]
  - Oxygen saturation decreased [None]
  - Nausea [None]
  - Unresponsive to stimuli [None]
  - Drug hypersensitivity [None]

NARRATIVE: CASE EVENT DATE: 20230206
